FAERS Safety Report 4718425-3 (Version None)
Quarter: 2005Q3

REPORT INFORMATION
  Report Type: 
  Country: None (occurrence: None)
  Receive Date: 20050720
  Receipt Date: 20041104
  Transmission Date: 20060218
  Serious: Yes (Hospitalization)
  Sender: FDA-Public Use
  Company Number: DE-MERCK-0411DEU00085

PATIENT
  Age: 63 Year
  Sex: Male
  Weight: 79 kg

DRUGS (14)
  1. VIOXX [Suspect]
     Indication: LUMBAR RADICULOPATHY
     Route: 048
     Dates: start: 20010112
  2. VIOXX [Suspect]
     Route: 048
     Dates: start: 20020410, end: 20040708
  3. VIOXX [Suspect]
     Indication: RADICULAR SYNDROME
     Route: 048
     Dates: start: 20010112
  4. VIOXX [Suspect]
     Route: 048
     Dates: start: 20020410, end: 20040708
  5. PRAVASTATIN SODIUM [Suspect]
     Indication: LOW DENSITY LIPOPROTEIN INCREASED
     Route: 065
     Dates: start: 20031210, end: 20031201
  6. CANDESARTAN CILEXETIL [Concomitant]
     Route: 065
  7. DILTIAZEM HYDROCHLORIDE [Concomitant]
     Route: 065
  8. CLOPIDOGREL BISULFATE [Concomitant]
     Route: 065
  9. ROXITHROMYCIN [Concomitant]
     Route: 065
  10. CODEINE SULFATE [Concomitant]
     Route: 065
  11. METOPROLOL SUCCINATE [Concomitant]
     Route: 065
  12. HYDROCHLOROTHIAZIDE AND TRIAMTERENE [Concomitant]
     Route: 065
  13. DICLOFENAC SODIUM [Concomitant]
     Route: 065
  14. TETRAZEPAM [Concomitant]
     Route: 065

REACTIONS (5)
  - CHEST DISCOMFORT [None]
  - DYSPNOEA EXERTIONAL [None]
  - MYOCARDIAL INFARCTION [None]
  - POSTINFARCTION ANGINA [None]
  - RASH [None]
